FAERS Safety Report 19706945 (Version 1)
Quarter: 2021Q3

REPORT INFORMATION
  Report Type: Spontaneous
  Country: US (occurrence: US)
  Receive Date: 20210816
  Receipt Date: 20210816
  Transmission Date: 20211014
  Serious: Yes (Hospitalization, Disabling)
  Sender: FDA-Public Use
  Company Number: None

PATIENT
  Age: 63 Year
  Sex: Female
  Weight: 46.35 kg

DRUGS (12)
  1. L THEANINE [Concomitant]
  2. PAXIL [Concomitant]
     Active Substance: PAROXETINE HYDROCHLORIDE
  3. TRAZODONE [Concomitant]
     Active Substance: TRAZODONE HYDROCHLORIDE
  4. OXAZEPAM. [Concomitant]
     Active Substance: OXAZEPAM
  5. ASHWAGANDA [Concomitant]
     Active Substance: HERBALS
  6. ALAPHA LYOIC ACID [Concomitant]
  7. ADRENAL VITAMINS [Concomitant]
  8. MAGNESIUM [Concomitant]
     Active Substance: MAGNESIUM
  9. IBANDRONATE SODIUM. [Suspect]
     Active Substance: IBANDRONATE SODIUM
     Indication: OSTEOPOROSIS
     Dosage: ?          QUANTITY:150 TABLET(S);OTHER FREQUENCY:ONE PER MONTH;?
     Route: 048
     Dates: start: 20210201, end: 20210502
  10. VIT B [Concomitant]
     Active Substance: VITAMIN B
  11. MULIT VITAMINS [Concomitant]
  12. MONOLAUREN [Concomitant]

REACTIONS (15)
  - Headache [None]
  - Fatigue [None]
  - Nausea [None]
  - Blood pressure increased [None]
  - Rash [None]
  - Early retirement [None]
  - Visual impairment [None]
  - Urticaria [None]
  - Weight decreased [None]
  - Dizziness [None]
  - Heart rate increased [None]
  - Loss of employment [None]
  - Adverse drug reaction [None]
  - Nervousness [None]
  - Anxiety [None]

NARRATIVE: CASE EVENT DATE: 20210502
